FAERS Safety Report 15370837 (Version 1)
Quarter: 2018Q3

REPORT INFORMATION
  Report Type: Report from Study
  Country: None (occurrence: US)
  Receive Date: 20180911
  Receipt Date: 20180911
  Transmission Date: 20181010
  Serious: Yes (Other)
  Sender: FDA-Public Use
  Company Number: US-ABBVIE-18K-163-2391951-00

PATIENT
  Age: 63 Year
  Sex: Female

DRUGS (2)
  1. HUMIRA [Suspect]
     Active Substance: ADALIMUMAB
     Route: 058
     Dates: start: 20180626
  2. HUMIRA [Suspect]
     Active Substance: ADALIMUMAB
     Indication: PSORIASIS
     Dosage: DAY 1
     Route: 058
     Dates: start: 20180530, end: 20180530

REACTIONS (12)
  - Skin abrasion [Not Recovered/Not Resolved]
  - Nausea [Recovering/Resolving]
  - Alopecia [Not Recovered/Not Resolved]
  - Psoriasis [Not Recovered/Not Resolved]
  - Ear infection [Recovered/Resolved]
  - Nasopharyngitis [Recovered/Resolved]
  - Skin irritation [Not Recovered/Not Resolved]
  - Medical device removal [Unknown]
  - Incorrect dose administered [Unknown]
  - Erythema [Not Recovered/Not Resolved]
  - Wrong technique in product usage process [Unknown]
  - Injection site pain [Unknown]

NARRATIVE: CASE EVENT DATE: 2018
